FAERS Safety Report 17570836 (Version 2)
Quarter: 2022Q4

REPORT INFORMATION
  Report Type: Spontaneous
  Country: DE (occurrence: DE)
  Receive Date: 20200323
  Receipt Date: 20221020
  Transmission Date: 20230113
  Serious: Yes (Hospitalization)
  Sender: FDA-Public Use
  Company Number: DE-ADRED-04458-01

PATIENT
  Age: 71 Year
  Sex: Female
  Weight: 69 kg

DRUGS (9)
  1. MOXIFLOXACIN HYDROCHLORIDE [Interacting]
     Active Substance: MOXIFLOXACIN HYDROCHLORIDE
     Dosage: 400 MG
     Route: 048
  2. SIMVASTATIN [Interacting]
     Active Substance: SIMVASTATIN
     Dosage: 40 MG, QD, 1-0-0-0
     Route: 048
  3. VERAPAMIL [Suspect]
     Active Substance: VERAPAMIL HYDROCHLORIDE
     Dosage: 40 MG, OM
     Route: 048
  4. SPIRONOLACTONE [Suspect]
     Active Substance: SPIRONOLACTONE
     Dosage: 50 MG, QD, 1-0-0-0
     Route: 048
  5. TORSEMIDE [Suspect]
     Active Substance: TORSEMIDE
     Dosage: 10 MG, BID, 1-1-0-0
     Route: 048
  6. EDOXABAN [Suspect]
     Active Substance: EDOXABAN
     Dosage: 60 MG, QD,  1-0-0-0
     Route: 048
  7. TELMISARTAN [Interacting]
     Active Substance: TELMISARTAN
     Dosage: 80 MG, QD, 1-0-0-0
     Route: 048
  8. ALLOPURINOL [Suspect]
     Active Substance: ALLOPURINOL
     Dosage: 300 MG, QD, 1-0-0-0
     Route: 048
  9. VITAMIN B12 [Concomitant]
     Active Substance: CYANOCOBALAMIN
     Dosage: 1 MG, QD, 1-0-0-0
     Route: 048

REACTIONS (12)
  - Cough [Unknown]
  - Hyperthyroidism [Unknown]
  - Localised infection [Unknown]
  - Electrolyte imbalance [Unknown]
  - Renal impairment [Unknown]
  - Pericardial effusion [Unknown]
  - Dyspnoea [Unknown]
  - Chest pain [Unknown]
  - Labelled drug-drug interaction medication error [Unknown]
  - Product monitoring error [Unknown]
  - Product used for unknown indication [Unknown]
  - Fall [Unknown]
